FAERS Safety Report 17297032 (Version 1)
Quarter: 2020Q1

REPORT INFORMATION
  Report Type: Spontaneous
  Country: JP (occurrence: JP)
  Receive Date: 20200122
  Receipt Date: 20200122
  Transmission Date: 20200409
  Serious: Yes (Other)
  Sender: FDA-Public Use
  Company Number: JP-ROCHE-2509238

PATIENT
  Age: 11 Year
  Sex: Female

DRUGS (1)
  1. XOLAIR [Suspect]
     Active Substance: OMALIZUMAB
     Indication: CHILDHOOD ASTHMA
     Route: 058
     Dates: start: 201610

REACTIONS (5)
  - Eosinophil count decreased [Unknown]
  - Bronchitis bacterial [Recovered/Resolved]
  - Cough [Not Recovered/Not Resolved]
  - Neutrophil count increased [Unknown]
  - Sputum purulent [Unknown]

NARRATIVE: CASE EVENT DATE: 201908
